FAERS Safety Report 4928971-5 (Version None)
Quarter: 2006Q1

REPORT INFORMATION
  Report Type: 
  Country: None (occurrence: None)
  Receive Date: 20060301
  Receipt Date: 20060220
  Transmission Date: 20060701
  Serious: Yes (Hospitalization)
  Sender: FDA-Public Use
  Company Number: GB-GLAXOSMITHKLINE-B0412854A

PATIENT
  Age: 84 Year
  Sex: Female
  Weight: 80 kg

DRUGS (7)
  1. AUGMENTIN [Suspect]
     Dosage: 625MG THREE TIMES PER DAY
     Route: 048
     Dates: start: 20060101
  2. PREDNISOLONE [Concomitant]
     Dosage: 10MG IN THE MORNING
     Route: 065
  3. ATENOLOL [Concomitant]
     Dosage: 25MG PER DAY
     Route: 065
  4. BENDROFLUMETHIAZIDE [Concomitant]
     Dosage: 2.5MG PER DAY
     Route: 065
  5. CALCICHEW [Concomitant]
     Dosage: 2U PER DAY
     Route: 065
  6. OMEPRAZOLE [Concomitant]
     Dosage: 20MG PER DAY
     Route: 065
  7. INFLUENZA VACCINE [Concomitant]
     Indication: PROPHYLAXIS
     Route: 058
     Dates: start: 20051101, end: 20051101

REACTIONS (2)
  - JAUNDICE CHOLESTATIC [None]
  - PRURITUS [None]
